FAERS Safety Report 19193915 (Version 1)
Quarter: 2021Q2

REPORT INFORMATION
  Report Type: Spontaneous
  Country: CA (occurrence: CA)
  Receive Date: 20210429
  Receipt Date: 20210429
  Transmission Date: 20210717
  Serious: Yes (Death)
  Sender: FDA-Public Use
  Company Number: CA-PFIZER INC-2021417922

PATIENT
  Age: 52 Year
  Sex: Male
  Weight: 90 kg

DRUGS (14)
  1. VORICONAZOLE. [Suspect]
     Active Substance: VORICONAZOLE
     Indication: ASPERGILLUS INFECTION
     Dosage: 6 MG/KG TWICE DAILY FOR TWO DOSES
     Route: 042
  2. VORICONAZOLE. [Suspect]
     Active Substance: VORICONAZOLE
     Dosage: TWO ADDITIONAL DOSES OF VORICONAZOLE 6 MG/KG
  3. CASPOFUNGIN [Concomitant]
     Active Substance: CASPOFUNGIN
     Dosage: 50 MG, DAILY
  4. VORICONAZOLE. [Suspect]
     Active Substance: VORICONAZOLE
     Dosage: INCREASED TO 4.5 MG/KG TWICE DAILY ON DAY 23
  5. METHYLPREDNISOLONE. [Concomitant]
     Active Substance: METHYLPREDNISOLONE
     Indication: PNEUMONITIS
     Dosage: 1 MG/KG, DAILY
  6. VORICONAZOLE. [Suspect]
     Active Substance: VORICONAZOLE
     Dosage: INCREASED TO 6.5 MG/KG THREE TIMES DAILY.
  7. CASPOFUNGIN [Concomitant]
     Active Substance: CASPOFUNGIN
     Indication: ASPERGILLUS INFECTION
     Dosage: 70 MG DAY 1
  8. AMPHOTERICIN B, LIPOSOME [Concomitant]
     Active Substance: AMPHOTERICIN B
     Indication: FUNGAL INFECTION
     Dosage: 3 MG/KG, DAILY
  9. VORICONAZOLE. [Suspect]
     Active Substance: VORICONAZOLE
     Dosage: 4 MG/KG TWICE DAILY
     Route: 042
  10. CASPOFUNGIN [Concomitant]
     Active Substance: CASPOFUNGIN
     Dosage: INCREASED TO 70 MG/DAY
  11. VORICONAZOLE. [Suspect]
     Active Substance: VORICONAZOLE
     Dosage: 4 MG/KG TWICE DAILY
  12. AMPHOTERICIN B, LIPOSOME [Concomitant]
     Active Substance: AMPHOTERICIN B
     Indication: ASPERGILLUS INFECTION
     Dosage: 25 MG, 3X/DAY
  13. AMPHOTERICIN B, LIPOSOME [Concomitant]
     Active Substance: AMPHOTERICIN B
     Dosage: 5 MG/KG, DAILY(ON DAY 30)
     Route: 042
  14. MEROPENEM. [Concomitant]
     Active Substance: MEROPENEM
     Indication: PNEUMONIA
     Dosage: UNK

REACTIONS (2)
  - Treatment failure [Fatal]
  - Drug level below therapeutic [Fatal]
